FAERS Safety Report 5040875-9 (Version None)
Quarter: 2006Q2

REPORT INFORMATION
  Report Type: 
  Country: None (occurrence: None)
  Receive Date: 20060629
  Receipt Date: 20060629
  Transmission Date: 20061013
  Serious: Yes (Other)
  Sender: FDA-Public Use
  Company Number: None

PATIENT
  Age: 31 Year
  Sex: Female
  Weight: 79.3795 kg

DRUGS (1)
  1. MICONAZOLE 3 [Suspect]
     Indication: FUNGAL INFECTION
     Dosage: 200 MG ONCE A NIGHT VAG
     Route: 067
     Dates: start: 20060626, end: 20060628

REACTIONS (2)
  - APPLICATION SITE IRRITATION [None]
  - APPLICATION SITE PRURITUS [None]
